FAERS Safety Report 6136499-2 (Version None)
Quarter: 2009Q1

REPORT INFORMATION
  Report Type: 
  Country: None (occurrence: None)
  Receive Date: 20090330
  Receipt Date: 20090318
  Transmission Date: 20090719
  Serious: Yes (Hospitalization)
  Sender: FDA-Public Use
  Company Number: FR-PFIZER INC-2008048236

PATIENT

DRUGS (7)
  1. DALACINE [Suspect]
     Route: 048
     Dates: start: 20080510, end: 20080520
  2. TRILEPTAL [Suspect]
     Indication: CONVULSION
     Route: 048
     Dates: start: 20070301
  3. SINTROM [Concomitant]
  4. KARDEGIC [Concomitant]
  5. HYTACAND [Concomitant]
  6. CARDENSIEL [Concomitant]
  7. PRAVASTATIN SODIUM [Concomitant]

REACTIONS (4)
  - DERMATITIS EXFOLIATIVE [None]
  - DRUG RASH WITH EOSINOPHILIA AND SYSTEMIC SYMPTOMS [None]
  - NEPHRITIS [None]
  - RENAL FAILURE [None]
